FAERS Safety Report 21315334 (Version 1)
Quarter: 2022Q3

REPORT INFORMATION
  Report Type: Spontaneous
  Country: US (occurrence: None)
  Receive Date: 20220909
  Receipt Date: 20220909
  Transmission Date: 20221027
  Serious: No
  Sender: FDA-Public Use
  Company Number: US-ARIS GLOBAL-202111-2121

PATIENT
  Age: 71 Year
  Sex: Male
  Weight: 91.254 kg

DRUGS (17)
  1. OXERVATE [Suspect]
     Active Substance: CENEGERMIN-BKBJ
     Indication: Neurotrophic keratopathy
     Route: 047
     Dates: start: 20211115
  2. HUMALOG [Concomitant]
     Active Substance: INSULIN LISPRO
  3. AMLODIPINE BESYLATE [Concomitant]
     Active Substance: AMLODIPINE BESYLATE
  4. HYDRALAZINE HCL [Concomitant]
     Active Substance: HYDRALAZINE HYDROCHLORIDE
  5. VITAMINS [Concomitant]
     Active Substance: VITAMINS
  6. VITAMIN D3 [Concomitant]
     Active Substance: CHOLECALCIFEROL
  7. MAGNESIUM [Concomitant]
     Active Substance: MAGNESIUM
  8. DORZOLAMIDE [Concomitant]
     Active Substance: DORZOLAMIDE
  9. FINASTERIDE [Concomitant]
     Active Substance: FINASTERIDE
  10. GABAPENTIN [Concomitant]
     Active Substance: GABAPENTIN
  11. ROSUVASTATIN CALCIUM [Concomitant]
     Active Substance: ROSUVASTATIN CALCIUM
  12. VENCLEXTA [Concomitant]
     Active Substance: VENETOCLAX
  13. METOPROLOL SUCCINATE [Concomitant]
     Active Substance: METOPROLOL SUCCINATE
  14. ASPIRIN [Concomitant]
     Active Substance: ASPIRIN
  15. ALLOPURINOL [Concomitant]
     Active Substance: ALLOPURINOL
  16. VALACYCLOVIR [Concomitant]
     Active Substance: VALACYCLOVIR HYDROCHLORIDE
  17. LEVOTHYROXINE [Concomitant]
     Active Substance: LEVOTHYROXINE

REACTIONS (9)
  - Malaise [Unknown]
  - Eye pain [Not Recovered/Not Resolved]
  - Erythema of eyelid [Unknown]
  - Swelling of eyelid [Not Recovered/Not Resolved]
  - Dyspnoea [Unknown]
  - Periorbital discomfort [Unknown]
  - Eyelid irritation [Unknown]
  - Eye discharge [Not Recovered/Not Resolved]
  - Eye swelling [Not Recovered/Not Resolved]

NARRATIVE: CASE EVENT DATE: 20211118
